FAERS Safety Report 10495310 (Version 1)
Quarter: 2014Q4

REPORT INFORMATION
  Report Type: Spontaneous
  Country: JP (occurrence: JP)
  Receive Date: 20141003
  Receipt Date: 20141003
  Transmission Date: 20150528
  Serious: Yes (Other)
  Sender: FDA-Public Use
  Company Number: JP-PFIZER INC-2014268208

PATIENT
  Age: 61 Year
  Sex: Female
  Weight: 48 kg

DRUGS (18)
  1. LIPITOR [Suspect]
     Active Substance: ATORVASTATIN CALCIUM
     Indication: HYPERLIPIDAEMIA
     Dosage: UNK
     Route: 048
  2. NEXIUM [Suspect]
     Active Substance: ESOMEPRAZOLE MAGNESIUM
     Indication: GASTRIC ULCER
     Dosage: 20 MG, 1X/DAY
     Route: 048
     Dates: start: 20140725, end: 20140729
  3. LIPITOR [Suspect]
     Active Substance: ATORVASTATIN CALCIUM
     Dosage: 10 MG, 1X/DAY
     Route: 048
     Dates: start: 20140725, end: 20140728
  4. KERLONG [Concomitant]
     Active Substance: BETAXOLOL HYDROCHLORIDE
     Dosage: 5 MG, UNK
  5. LOXONIN [Concomitant]
     Active Substance: LOXOPROFEN SODIUM
     Dosage: 50 MG, UNK
  6. LUPRAC [Concomitant]
     Active Substance: TORSEMIDE
     Dosage: 4 MG, UNK
  7. BREDININ [Concomitant]
     Active Substance: MIZORIBINE
     Dosage: 50 MG, UNK
  8. HERBESSER [Concomitant]
     Active Substance: DILTIAZEM HYDROCHLORIDE
     Dosage: 100 MG, UNK
  9. DIOVAN [Concomitant]
     Active Substance: VALSARTAN
     Dosage: 80 MG, UNK
  10. WARFARIN POTASSIUM [Concomitant]
     Active Substance: WARFARIN POTASSIUM
     Dosage: 1 MG, UNK
  11. LOCHOL [Concomitant]
     Active Substance: FLUVASTATIN SODIUM
     Indication: HYPERLIPIDAEMIA
     Dosage: 20 MG, UNK
     Route: 048
  12. MUCOSTA [Concomitant]
     Active Substance: REBAMIPIDE
     Dosage: 100 MG, UNK
  13. PLAVIX [Concomitant]
     Active Substance: CLOPIDOGREL BISULFATE
     Dosage: 75 MG, UNK
  14. GASTER [Concomitant]
     Active Substance: FAMOTIDINE
     Dosage: 20 MG, UNK
  15. BAYASPIRIN [Concomitant]
     Active Substance: ASPIRIN
     Dosage: 100 MG, UNK
  16. ZYLORIC [Concomitant]
     Active Substance: ALLOPURINOL
     Dosage: 100 MG, UNK
  17. PREDNISOLONE. [Concomitant]
     Active Substance: PREDNISOLONE
     Dosage: 5 MG, UNK
  18. OPALMON [Concomitant]
     Active Substance: LIMAPROST
     Dosage: 5 UG, UNK

REACTIONS (2)
  - Leukopenia [Recovering/Resolving]
  - Rash [Unknown]

NARRATIVE: CASE EVENT DATE: 2003
